FAERS Safety Report 5096508-9 (Version None)
Quarter: 2006Q3

REPORT INFORMATION
  Report Type: 
  Country: None (occurrence: None)
  Receive Date: 20060830
  Receipt Date: 20060823
  Transmission Date: 20061208
  Serious: Yes (Hospitalization)
  Sender: FDA-Public Use
  Company Number: DEU-2006-0002429

PATIENT
  Age: 80 Year
  Sex: Female

DRUGS (2)
  1. MORPHINE SULFATE [Suspect]
     Indication: BACK PAIN
     Dosage: 10 MG, TID; ORAL
     Route: 048
  2. BENZODIAZEPINE DERIVATIVES [Concomitant]

REACTIONS (2)
  - HYPOGLYCAEMIA [None]
  - LABORATORY TEST INTERFERENCE [None]
